FAERS Safety Report 5534506-9 (Version None)
Quarter: 2007Q4

REPORT INFORMATION
  Report Type: 
  Country: None (occurrence: None)
  Receive Date: 20071205
  Receipt Date: 20071126
  Transmission Date: 20080405
  Serious: Yes (Other)
  Sender: FDA-Public Use
  Company Number: CH-WYE-G00675607

PATIENT
  Age: 55 Year
  Sex: Male

DRUGS (3)
  1. EFFEXOR [Suspect]
     Indication: DEPRESSION
     Route: 048
     Dates: start: 20071030, end: 20071111
  2. EFFEXOR [Suspect]
     Route: 048
     Dates: start: 20071112
  3. CYMBALTA [Concomitant]
     Dosage: UNKNOWN

REACTIONS (4)
  - INJURY [None]
  - LOSS OF CONSCIOUSNESS [None]
  - NIGHTMARE [None]
  - SOMNAMBULISM [None]
